FAERS Safety Report 8850014 (Version 5)
Quarter: 2013Q3

REPORT INFORMATION
  Report Type: Report from Study
  Country: JP (occurrence: JP)
  Receive Date: 20121019
  Receipt Date: 20130703
  Transmission Date: 20140515
  Serious: Yes (Death, Hospitalization, Other)
  Sender: FDA-Public Use
  Company Number: JP-BRISTOL-MYERS SQUIBB COMPANY-17054370

PATIENT
  Age: 70 Year
  Sex: Male
  Weight: 49.8 kg

DRUGS (61)
  1. SPRYCEL [Suspect]
     Indication: ACUTE LYMPHOCYTIC LEUKAEMIA
     Dosage: 20MG/D:19-21MAR12,11-12SP12,25SP-1OCT12,15SEP-17SEP?140MG:1-02MAR12
     Route: 048
     Dates: start: 20120301, end: 20121001
  2. WARFARIN POTASSIUM [Suspect]
     Indication: HYPOKALAEMIA
     Dosage: TABS:1.5MG(18MAR2012,15APR12,27APR-30APR,3MAY-4MAY,10MAY-13MAY,21SEP-25SEP,1OCT2012).
     Route: 048
     Dates: start: 20120303, end: 20121001
  3. PLETAAL [Suspect]
     Dosage: PLETAAL OD:TABS:200MG(3MAR2012,29MAR-5APR,7APR-9APR,11APR-13APR,1MAY-17MAY2012)
     Route: 048
     Dates: start: 20120303, end: 20120517
  4. BAYASPIRIN [Suspect]
     Dosage: TABS:100MG(11SEP2012-14SEP,21SEP-25SEP,1OCT)?200MG:15SEP,19SEP-20SEP,26SEP-30SEP?300MG:16SEP-18SEP
     Route: 048
     Dates: start: 20120911, end: 20121001
  5. LAXOBERON [Concomitant]
     Dosage: LAXOBERAON 0.75%:29FEB12-3MAR12:29MAR-18MAY2012
     Route: 048
     Dates: start: 20120229, end: 20120518
  6. AZUNOL [Concomitant]
     Dosage: TABS:29FEB2012-3MAR2012,18MAR-18MAY12
     Route: 048
     Dates: start: 20120229, end: 20120518
  7. XYLOCAINE VISCOUS [Concomitant]
     Dosage: 20ML:28FEB12-3MAR,18MAR-16MAY,18MAY-18MAY?25ML:17MAY12?5ML:28SEP12?STRENGH:2%
     Dates: start: 20120229, end: 20120928
  8. RABEPRAZOLE SODIUM [Concomitant]
     Dosage: TABS:10MG(29FEB12-3MAR,29MAR-14APR)?20MG:9MAY2012-12MAY
     Route: 048
     Dates: start: 20120229, end: 20120512
  9. VFEND [Concomitant]
     Dosage: TABS:400MG(29FEB12-3MAR,29MAR-13APR,18APR-4MAY,7MAY-18MAY,11SEP-14SEP,21SEP-1OCT2012)
     Route: 048
     Dates: start: 20120229, end: 20121001
  10. GLUCONSAN-K [Concomitant]
     Dosage: TABS:30MEQ(10APR2012-13APR,16APR2012,1MAY-9MAY,11MAY-13MAY2012).
     Route: 048
     Dates: start: 20120303, end: 20120513
  11. WATER FOR INJECTION, STERILE [Concomitant]
     Dosage: INJ:(29FEB2012-3MAR12,18MAR-18MAY2012)
     Dates: start: 20120229, end: 20120518
  12. ISOTONIC SODIUM CHLORIDE [Concomitant]
     Dosage: 150ML:(28SEP,01OCT2012)?100ML:(29FEB2012-1MAR,3MAR,6APR,26SEP2012)?120ML:2MAR2012
     Dates: start: 20120229, end: 20121001
  13. DECADRON [Concomitant]
     Dosage: INJ:3.3MG(2MAR12,17MAR12)?6.6MG(13SEP-15SEP2012)
     Dates: start: 20120302, end: 20120915
  14. KAYTWO N [Concomitant]
     Dosage: CAPS:10MG(7APR2012,27SEP2012)?40MG(16APR2012)?INJ:IV(10MG)
     Route: 048
     Dates: start: 20120407, end: 20120927
  15. ZOSYN [Concomitant]
     Indication: FEBRILE NEUTROPENIA
     Dosage: INJ:13.5G(7APR-24APR2012,27APR2012,30APR-15MAY,18MAY,11SEP-14SEP2012,01OCT2012)
     Route: 042
     Dates: start: 20120406, end: 20121001
  16. ZOSYN [Concomitant]
     Indication: CELLULITIS ORBITAL
     Dosage: INJ:13.5G(7APR-24APR2012,27APR2012,30APR-15MAY,18MAY,11SEP-14SEP2012,01OCT2012)
     Route: 042
     Dates: start: 20120406, end: 20121001
  17. ZOSYN [Concomitant]
     Indication: PNEUMONIA
     Dosage: INJ:13.5G(7APR-24APR2012,27APR2012,30APR-15MAY,18MAY,11SEP-14SEP2012,01OCT2012)
     Route: 042
     Dates: start: 20120406, end: 20121001
  18. BIOFERMIN R [Concomitant]
     Indication: PSEUDOMEMBRANOUS COLITIS
     Dosage: 1 DF:3TABS(13APR2012,19APR-22APR-7MAY-8MAY,15MAY-18MAY2012).
     Route: 048
     Dates: start: 20120412, end: 20120518
  19. LASIX [Concomitant]
     Indication: CARDIAC FAILURE
     Dosage: TABS:(120MG:27SEP2012-1OCT2012)?140MG(26SEP2012)?80MG(25SEP,16SEP2012-20SEP2012)
     Route: 048
     Dates: start: 20120412, end: 20121001
  20. ACETATED RINGERS [Concomitant]
     Dosage: INJ:500ML(9APR2012,17MAY2012)?1000ML(27SEP2012).
     Dates: start: 20120409, end: 20120927
  21. SOLDEM 3A [Concomitant]
     Dosage: 500ML:(9APR2012-10AP,16AP,25APR,28APR2012,3MAY-10MAY,18MAY,28SEP2012).
     Dates: start: 20120409, end: 20120928
  22. OMEPRAZOLE [Concomitant]
     Dosage: INJ:40MG(15APR2012-27APR,24APR-27APR,17MAY-18MAY,28SEP2012)?20MG(28APR,27SEP2012
     Route: 042
     Dates: start: 20120415, end: 20120928
  23. VANCOMYCIN [Concomitant]
     Indication: FEBRILE NEUTROPENIA
     Dosage: INJ:(0.5G:15APR2012,28APR,5MAY2012-9MAY12)?1.5G(16APR-18APR,29APR2012)?1G(19APR12-27APR,30APR-4MAY
     Route: 042
     Dates: start: 20120415, end: 20120509
  24. VANCOMYCIN [Concomitant]
     Indication: PNEUMONIA
     Dosage: INJ:(0.5G:15APR2012,28APR,5MAY2012-9MAY12)?1.5G(16APR-18APR,29APR2012)?1G(19APR12-27APR,30APR-4MAY
     Route: 042
     Dates: start: 20120415, end: 20120509
  25. VANCOMYCIN [Concomitant]
     Indication: CELLULITIS ORBITAL
     Dosage: INJ:(0.5G:15APR2012,28APR,5MAY2012-9MAY12)?1.5G(16APR-18APR,29APR2012)?1G(19APR12-27APR,30APR-4MAY
     Route: 042
     Dates: start: 20120415, end: 20120509
  26. POTASSIUM CHLORIDE [Concomitant]
     Indication: HYPOKALAEMIA
     Dosage: INJ(20MEQ:17APR-28APR2012,14MAY2012,16MAY-18MAY2012)?40MEQ:29APR2012
     Route: 048
     Dates: start: 20120417, end: 20120518
  27. CRAVIT [Concomitant]
     Dosage: TABS:(500MG:23APR2012-13MAY,16SEP-17SEP,21SEP-01OCT2012)?1000MG(18SEP-20SEP2012)
     Route: 048
     Dates: start: 20120423, end: 20121001
  28. HARNAL [Concomitant]
     Indication: BENIGN PROSTATIC HYPERPLASIA
     Dosage: HARNAL D:TABS:0.1MG(11SE12-12SEP,21SEP-1OCT)?0.2MG(23APR-9MAY,16SEP-17SEP)?0.3MG(18SEP-20SEP12)
     Route: 048
     Dates: start: 20120423, end: 20121001
  29. PREDNISONE [Concomitant]
     Indication: ACUTE LYMPHOCYTIC LEUKAEMIA
     Dosage: TABS:20MG:26APR2012-9MAY,25SEP-1OCT?15MG:10MAY-17MAY,11SEP-13SEP?10MG:18MAY?50MG:16SEP-17SEP
     Route: 048
     Dates: start: 20120426, end: 20121001
  30. LYRICA [Concomitant]
     Dosage: CAPS:150MG(2MAY12-18MAY,25SEP-1OCT)?200MG(12SEP-14SEP,21SEP-24SEP)?350MG(16SE-17SE,19SE-20SE
     Route: 048
     Dates: start: 20120426, end: 20121001
  31. FENTANYL [Concomitant]
     Dosage: INJ:25MCG(21APR12,24APR-26APR,1-2MAY,6-8MAY,11MAY,13-14MAY,17MAY)?75MCG:20APR,3-4MAY,9MAY,16MAY
     Dates: start: 20120420, end: 20120517
  32. NOVAMIN INJ [Concomitant]
     Indication: PROPHYLAXIS
     Route: 030
     Dates: start: 20120422, end: 20120505
  33. ALDACTONE-A [Concomitant]
     Indication: CARDIAC FAILURE
     Dosage: TABS:150MG(26SEP-01OCT2012)?100MG(25SEP,16SEP-20SEP)?50MG(21SEP-24SEP,11SEP-15SEP,2MAY-18MAY)
     Route: 048
     Dates: start: 20120502, end: 20121001
  34. ALDACTONE-A [Concomitant]
     Indication: HYPERTENSION
     Dosage: TABS:150MG(26SEP-01OCT2012)?100MG(25SEP,16SEP-20SEP)?50MG(21SEP-24SEP,11SEP-15SEP,2MAY-18MAY)
     Route: 048
     Dates: start: 20120502, end: 20121001
  35. FUROSEMIDE [Concomitant]
     Indication: HYPERTENSION
     Dosage: TABS:10MG:3MAY2012-12MAY,?20MG:(11SEP2012)
     Route: 048
     Dates: start: 20120503, end: 20120911
  36. FUROSEMIDE [Concomitant]
     Indication: CARDIAC FAILURE
     Dosage: TABS:10MG:3MAY2012-12MAY,?20MG:(11SEP2012)
     Route: 048
     Dates: start: 20120503, end: 20120911
  37. ALBUMIN TANNATE [Concomitant]
     Indication: PSEUDOMEMBRANOUS COLITIS
     Dosage: 6MAY2012:2G?7MAY2012-8MAY2012:3G
     Dates: start: 20120506, end: 20120508
  38. LOPEMIN [Concomitant]
     Indication: PSEUDOMEMBRANOUS COLITIS
     Dosage: CAPS:6MG(16MAY2012-18MAY)?4MG:13MAY-15MAY?5MG;12MAY?3MG:10MAY-11MAY?2MG:9MAY
     Route: 048
     Dates: start: 20120509, end: 20120518
  39. RINGERS SOLUTION, LACTATED [Concomitant]
     Dosage: 12MAY2012,15MAY2012,17MAY2012
     Dates: start: 20120512, end: 20120517
  40. MAGNESIUM SULFATE [Concomitant]
     Dosage: 07MAY2012,11MAY2012,16MAY2012?MAGNESIUM SULFATE HYDRATE
     Dates: start: 20120507, end: 20120516
  41. CALCIUM CHLORIDE [Concomitant]
     Dosage: 8MAY2012,10MAY2012,14MAY2012,17MAY-18MAY,13MAY2012,15MAY2012?CALCIUM CHLORIDE HYDRATE
     Dates: start: 20120508, end: 20120515
  42. POTASSIUM PHOSPHATE DIBASIC [Concomitant]
     Dosage: 08MAY2012,10MAY2012-11MAY2012
     Dates: start: 20120508, end: 20120511
  43. TAKEPRON [Concomitant]
     Indication: PROPHYLAXIS
     Dosage: TAKEPRON OD:TABS:13MAY2012-16MAY2012,29SEP-01OCT2012
     Route: 048
     Dates: start: 20120513, end: 20121001
  44. FAMOTIDINE TABS [Concomitant]
     Indication: PROPHYLAXIS
     Dosage: 20MG:11SEP2012-17SEP2012?10MG:18SEP2012
     Route: 048
     Dates: start: 20120911, end: 20120918
  45. RENIVACE [Concomitant]
     Indication: HYPERTENSION
     Dosage: TABS:11SEP2012-15SEP,16SEP-20SEP,21SEP2012
     Route: 048
     Dates: start: 20120911, end: 20120921
  46. RENIVACE [Concomitant]
     Indication: CARDIAC FAILURE
     Dosage: TABS:11SEP2012-15SEP,16SEP-20SEP,21SEP2012
     Route: 048
     Dates: start: 20120911, end: 20120921
  47. MAINTATE [Concomitant]
     Indication: HYPERTENSION
     Dosage: TABS:2.5MG:28SEP-1OCT,21-25SEP12?5MG:26-27SEP,18-20SEP?3.75MG:16-17SEP?1.25MG:11-15SEP
     Route: 048
     Dates: start: 20120911, end: 20121001
  48. MAINTATE [Concomitant]
     Indication: CARDIAC FAILURE
     Dosage: TABS:2.5MG:28SEP-1OCT,21-25SEP12?5MG:26-27SEP,18-20SEP?3.75MG:16-17SEP?1.25MG:11-15SEP
     Route: 048
     Dates: start: 20120911, end: 20121001
  49. TAMSULOSIN HCL [Concomitant]
     Indication: BENIGN PROSTATIC HYPERPLASIA
     Dosage: HALTHROW OD:TABS:
     Route: 048
     Dates: start: 20120911, end: 20120918
  50. BISOPROLOL FUMARATE [Concomitant]
     Dosage: MAINHEART
     Route: 048
     Dates: start: 20120911, end: 20120918
  51. RENIVEZE [Concomitant]
     Dosage: TABS:7.5MG:29SEP-1OCT2012?2.5MG:11SEP-18SEP,21SEP-25SEP?5MG:26SEP-28SEP
     Route: 048
     Dates: start: 20120911, end: 20121001
  52. GASTER D [Concomitant]
     Indication: PROPHYLAXIS
     Dosage: TABS:20MG:21SEP-1OCT2012?30MG:18SEP-20SEP?10MG:16SEP-20SEP
     Route: 048
     Dates: start: 20120916, end: 20121001
  53. DEXTROSE 5% [Concomitant]
     Dosage: INJ:150ML(11SEP-14SEP2012)?100ML(15SEP2012)
     Dates: start: 20120911, end: 20120915
  54. AUGMENTIN [Concomitant]
     Indication: FEBRILE NEUTROPENIA
     Dosage: TABS
     Route: 048
     Dates: start: 20120926, end: 20121001
  55. AUGMENTIN [Concomitant]
     Indication: PNEUMONIA
     Dosage: TABS
     Route: 048
     Dates: start: 20120926, end: 20121001
  56. CIPROXAN [Concomitant]
     Indication: PNEUMONIA
     Route: 048
  57. CIPROXAN [Concomitant]
     Indication: FEBRILE NEUTROPENIA
     Route: 048
  58. CIPROXAN [Concomitant]
     Indication: CELLULITIS ORBITAL
     Route: 048
  59. ACICLOVIR [Concomitant]
     Indication: PROPHYLAXIS
  60. RISPERIDAL [Concomitant]
     Indication: INSOMNIA
     Route: 048
  61. VITAMEDIN [Concomitant]
     Route: 042

REACTIONS (4)
  - Malignant neoplasm progression [Fatal]
  - Gastrointestinal haemorrhage [Recovered/Resolved]
  - Telangiectasia [Recovered/Resolved]
  - Hepatobiliary disease [Not Recovered/Not Resolved]
